FAERS Safety Report 10373952 (Version 1)
Quarter: 2014Q1

REPORT INFORMATION
  Report Type: Spontaneous
  Country: US (occurrence: None)
  Receive Date: 20140306
  Receipt Date: 20140306
  Transmission Date: 20141002
  Serious: Yes (Life-Threatening, Hospitalization, Other)
  Sender: FDA-Public Use
  Company Number: 163-21880-13014339

PATIENT
  Age: 89 Year
  Sex: Female

DRUGS (10)
  1. REVLIMID (LENALIDOMIDE) (25 MILLIGRAM, CAPSULES) [Suspect]
     Indication: PLASMA CELL MYELOMA
     Route: 048
     Dates: start: 20121201, end: 20121218
  2. FOLIC ACID (FOLIC ACID) [Concomitant]
  3. BABY ASPIRIN (ACETYLSALICYLIC ACID) [Concomitant]
  4. ATIVAN (LORAZEPAM) [Concomitant]
  5. SYNTHROID (LEVOTHYROXINE SODIUM) [Concomitant]
  6. NEXIUM (ESOMEPRAZOLE) [Concomitant]
  7. BENTYL (DICYCLOVERINE HYDROCHLORIDE) [Concomitant]
  8. FLUCONAZOLE (FLUCONAZOLE) [Concomitant]
  9. ACYCLOVIR (ACICLOVIR) [Concomitant]
  10. DEXAMETHASONE (DEXAMETHASONE) [Concomitant]

REACTIONS (2)
  - Venous thrombosis limb [None]
  - Pneumonia [None]
